FAERS Safety Report 18816708 (Version 1)
Quarter: 2021Q1

REPORT INFORMATION
  Report Type: Spontaneous
  Country: AU (occurrence: AU)
  Receive Date: 20210201
  Receipt Date: 20210201
  Transmission Date: 20210419
  Serious: Yes (Other)
  Sender: FDA-Public Use
  Company Number: AU-JNJFOC-20210134976

PATIENT
  Age: 44 Year
  Sex: Male

DRUGS (11)
  1. BUPRENORPHINE TRANSDERMAL SYSTEM [Concomitant]
     Active Substance: BUPRENORPHINE
     Indication: PAIN
     Route: 061
     Dates: start: 20200402
  2. PARACETAMOL [Concomitant]
     Active Substance: ACETAMINOPHEN
     Indication: PAIN
     Route: 048
     Dates: start: 20200402
  3. ZOPICLONE [Concomitant]
     Active Substance: ZOPICLONE
     Indication: INSOMNIA
     Dates: start: 20200318
  4. TOPIRAMATE. [Concomitant]
     Active Substance: TOPIRAMATE
     Indication: POST-TRAUMATIC STRESS DISORDER
     Route: 048
     Dates: start: 20200408
  5. PALIPERIDONE. [Suspect]
     Active Substance: PALIPERIDONE
     Indication: POST-TRAUMATIC STRESS DISORDER
     Route: 048
     Dates: start: 20200428, end: 20200519
  6. DIAZEPAM. [Concomitant]
     Active Substance: DIAZEPAM
     Indication: AGITATION
     Route: 048
     Dates: start: 20200506
  7. ARIPIPRAZOLE. [Suspect]
     Active Substance: ARIPIPRAZOLE
     Indication: POST-TRAUMATIC STRESS DISORDER
     Route: 048
     Dates: start: 20200420, end: 20200428
  8. IBUPROFEN. [Concomitant]
     Active Substance: IBUPROFEN
     Indication: ARTHRALGIA
     Route: 048
     Dates: start: 20200515
  9. THIAMINE. [Concomitant]
     Active Substance: THIAMINE
     Indication: NUTRITIONAL SUPPLEMENTATION
     Route: 048
     Dates: start: 20200320
  10. ACAMPROSATE CALCIUM. [Concomitant]
     Active Substance: ACAMPROSATE CALCIUM
     Indication: WITHDRAWAL SYNDROME
     Route: 048
     Dates: start: 20200420
  11. ESCITALOPRAM [Concomitant]
     Active Substance: ESCITALOPRAM OXALATE
     Indication: DEPRESSION
     Route: 048
     Dates: start: 20200317

REACTIONS (2)
  - Erythema [Recovering/Resolving]
  - Oedema [Not Recovered/Not Resolved]

NARRATIVE: CASE EVENT DATE: 20200426
